FAERS Safety Report 4399820-1 (Version None)
Quarter: 2004Q3

REPORT INFORMATION
  Report Type: 
  Country: None (occurrence: None)
  Receive Date: 20040714
  Receipt Date: 20040705
  Transmission Date: 20050211
  Serious: Yes (Hospitalization, Other)
  Sender: FDA-Public Use
  Company Number: 2004045405

PATIENT
  Age: 85 Year
  Sex: Female
  Weight: 92 kg

DRUGS (6)
  1. ZITHROMAX [Suspect]
     Indication: COUGH
     Dosage: 500 MG (250 MG, 2 IN 1 D), ORAL
     Route: 048
     Dates: start: 20040501, end: 20040501
  2. ZITHROMAX [Suspect]
     Indication: GENERAL PHYSICAL HEALTH DETERIORATION
     Dosage: 500 MG (250 MG, 2 IN 1 D), ORAL
     Route: 048
     Dates: start: 20040501, end: 20040501
  3. ACETYLSALICYLIC ACID SRT [Concomitant]
  4. ELIDIUR    (FOSINOPRIL SODIUM, HYDROCHLOROTHIAZIDE) [Concomitant]
  5. BISOPROLOL FUMARATE [Concomitant]
  6. FELODIPINE [Concomitant]

REACTIONS (2)
  - DERMATITIS BULLOUS [None]
  - HYPERPYREXIA [None]
